FAERS Safety Report 8895487 (Version 1)
Quarter: 2012Q4

REPORT INFORMATION
  Report Type: 
  Country: DE (occurrence: DE)
  Receive Date: 20121108
  Receipt Date: 20121108
  Transmission Date: 20130627
  Serious: Yes (Other)
  Sender: FDA-Public Use
  Company Number: DE-ARROW-2012-18542

PATIENT
  Age: 74 Year
  Sex: Female
  Weight: 70 kg

DRUGS (1)
  1. TERBINAFINE HYDROCHLORIDE [Suspect]
     Indication: NAIL BED INFECTION FUNGAL
     Dosage: UNK
     Route: 048
     Dates: start: 20120714, end: 20120803

REACTIONS (1)
  - Drug reaction with eosinophilia and systemic symptoms [Not Recovered/Not Resolved]
